FAERS Safety Report 4928942-9 (Version None)
Quarter: 2006Q1

REPORT INFORMATION
  Report Type: 
  Country: None (occurrence: None)
  Receive Date: 20060301
  Receipt Date: 20060223
  Transmission Date: 20060701
  Serious: Yes (Death, Hospitalization)
  Sender: FDA-Public Use
  Company Number: NSADSS2001023373

PATIENT
  Sex: Male
  Weight: 65 kg

DRUGS (1)
  1. REMICADE [Suspect]
     Indication: CROHN'S DISEASE
     Route: 041
     Dates: start: 19980101

REACTIONS (12)
  - ENDOCARDITIS [None]
  - HYPONATRAEMIA [None]
  - HYPOPROTEINAEMIA [None]
  - ILEUS [None]
  - IRON DEFICIENCY ANAEMIA [None]
  - OEDEMA PERIPHERAL [None]
  - PLEURAL EFFUSION [None]
  - PNEUMOTHORAX [None]
  - PULMONARY FIBROSIS [None]
  - STAPHYLOCOCCAL SEPSIS [None]
  - TUBERCULOSIS [None]
  - URINARY RETENTION [None]
